FAERS Safety Report 8090272-7 (Version None)
Quarter: 2012Q1

REPORT INFORMATION
  Report Type: 
  Country: None (occurrence: None)
  Receive Date: 20120129
  Receipt Date: 20111110
  Transmission Date: 20120608
  Serious: No
  Sender: FDA-Public Use
  Company Number: US-ABBOTT-11P-163-0873525-00

PATIENT
  Sex: Male
  Weight: 113.5 kg

DRUGS (2)
  1. HUMIRA [Suspect]
     Dates: start: 20110201
  2. HUMIRA [Suspect]
     Indication: PSORIASIS
     Dates: start: 20090101, end: 20101201

REACTIONS (5)
  - SKIN WARM [None]
  - SKIN INFECTION [None]
  - ERYTHEMA [None]
  - INGROWN HAIR [None]
  - SKIN HYPERTROPHY [None]
